FAERS Safety Report 18160555 (Version 2)
Quarter: 2020Q3

REPORT INFORMATION
  Report Type: Spontaneous
  Country: US (occurrence: US)
  Receive Date: 20200817
  Receipt Date: 20200826
  Transmission Date: 20201103
  Serious: Yes (Other)
  Sender: FDA-Public Use
  Company Number: US-GILEAD-2020-0489906

PATIENT
  Age: 82 Year
  Sex: Female
  Weight: 95.5 kg

DRUGS (8)
  1. TOCILIZUMAB. [Concomitant]
     Active Substance: TOCILIZUMAB
     Dosage: 400 MG, BID
     Route: 042
     Dates: start: 20200706, end: 20200707
  2. REMDESIVIR. [Suspect]
     Active Substance: REMDESIVIR
     Indication: ACUTE RESPIRATORY DISTRESS SYNDROME
  3. DEXAMETHASONE. [Concomitant]
     Active Substance: DEXAMETHASONE
     Dosage: 6 MG, QD
     Route: 042
     Dates: start: 20200701, end: 20200711
  4. FENTANYL CITRATE. [Concomitant]
     Active Substance: FENTANYL CITRATE
     Dosage: 50 MCG/HR CONTINUOUSLY
     Route: 042
     Dates: start: 20200707, end: 20200715
  5. CISATRACURIUM. [Concomitant]
     Active Substance: CISATRACURIUM
     Dosage: 37.5 MG/HR CONTINUOUS
     Route: 042
     Dates: start: 20200707, end: 20200715
  6. PROPOFOL. [Concomitant]
     Active Substance: PROPOFOL
     Dosage: 50 MCG/KG/MIN CONTINUOUSLY
     Route: 042
     Dates: start: 20200707, end: 20200710
  7. NOREPINEPHRINE. [Concomitant]
     Active Substance: NOREPINEPHRINE
     Dosage: 5 MCG/MIN CONTINUOUSLY
     Route: 042
     Dates: start: 20200708, end: 20200715
  8. REMDESIVIR. [Suspect]
     Active Substance: REMDESIVIR
     Indication: COVID-19
     Dosage: 100 MG, QD
     Route: 040
     Dates: start: 20200706, end: 20200716

REACTIONS (2)
  - Transaminases increased [Unknown]
  - Shock [Unknown]

NARRATIVE: CASE EVENT DATE: 20200708
